FAERS Safety Report 21637684 (Version 2)
Quarter: 2024Q4

REPORT INFORMATION
  Report Type: Spontaneous
  Country: BR (occurrence: BR)
  Receive Date: 20221124
  Receipt Date: 20241007
  Transmission Date: 20250114
  Serious: No
  Sender: CELLTRION
  Company Number: BR-CELLTRION INC.-2022BR019690

PATIENT

DRUGS (8)
  1. INFLIXIMAB [Suspect]
     Active Substance: INFLIXIMAB
     Indication: Spondylitis
     Dosage: 4 AMPOULES (400 MG) EVERY 2 MONTHS
     Route: 042
     Dates: start: 20220916
  2. INFLIXIMAB [Suspect]
     Active Substance: INFLIXIMAB
     Indication: Rheumatic disorder
     Dosage: 4 AMPOULES EVERY 2 MONTHS
     Route: 042
     Dates: end: 20221116
  3. INFLIXIMAB [Suspect]
     Active Substance: INFLIXIMAB
     Indication: Osteoporosis
  4. INFLIXIMAB [Suspect]
     Active Substance: INFLIXIMAB
     Indication: Hysterectomy
  5. INFLIXIMAB [Suspect]
     Active Substance: INFLIXIMAB
     Indication: Ankylosing spondylitis
  6. LOSARTAN [Concomitant]
     Active Substance: LOSARTAN
     Indication: Hypertension
     Dosage: 1 PILL WHEN BLOOD PRESSURE IS HIGH (START DATE: 3 MONTHS)
     Route: 048
  7. FOLIC ACID [Concomitant]
     Active Substance: FOLIC ACID
     Dosage: 2 PILLS A WEEK
     Route: 048
     Dates: start: 202209
  8. PANTOPRAZOLE [Concomitant]
     Active Substance: PANTOPRAZOLE
     Indication: Dyspepsia
     Dosage: 1 PILL A DAY / 40 MG 1 TABLET A DAY IN THE MORNING ON AN EMPTY STOMACH
     Route: 048
     Dates: start: 20220629

REACTIONS (5)
  - Somnolence [Unknown]
  - Product availability issue [Unknown]
  - Therapy interrupted [Unknown]
  - Intentional product use issue [Unknown]
  - Drug effect less than expected [Unknown]
